FAERS Safety Report 15580049 (Version 1)
Quarter: 2018Q4

REPORT INFORMATION
  Report Type: Spontaneous
  Country: US (occurrence: US)
  Receive Date: 20181102
  Receipt Date: 20181102
  Transmission Date: 20190205
  Serious: Yes (Other)
  Sender: FDA-Public Use
  Company Number: None

PATIENT
  Age: 59 Year
  Sex: Female
  Weight: 81 kg

DRUGS (1)
  1. NYQUIL SEVERE PLUS VICKS VAPOCOOL [Suspect]
     Active Substance: ACETAMINOPHEN\DEXTROMETHORPHAN HYDROBROMIDE\DOXYLAMINE SUCCINATE\PHENYLEPHRINE HYDROCHLORIDE
     Indication: NASOPHARYNGITIS
     Route: 048
     Dates: start: 20181029, end: 20181101

REACTIONS (3)
  - Palpitations [None]
  - Dyspnoea [None]
  - Insomnia [None]

NARRATIVE: CASE EVENT DATE: 20181029
